FAERS Safety Report 11822444 (Version 1)
Quarter: 2015Q4

REPORT INFORMATION
  Report Type: Spontaneous
  Country: US (occurrence: US)
  Receive Date: 20151210
  Receipt Date: 20151210
  Transmission Date: 20160305
  Serious: Yes (Hospitalization)
  Sender: FDA-Public Use
  Company Number: US-JNJFOC-20150514574

PATIENT
  Age: 76 Year
  Sex: Male

DRUGS (9)
  1. SYNTHROID [Concomitant]
     Active Substance: LEVOTHYROXINE SODIUM
  2. GABAPENTIN. [Concomitant]
     Active Substance: GABAPENTIN
  3. ACYCLOVIR. [Concomitant]
     Active Substance: ACYCLOVIR
  4. VITAMINS [Concomitant]
     Active Substance: VITAMINS
  5. MINERAL [Concomitant]
  6. AVODART [Concomitant]
     Active Substance: DUTASTERIDE
  7. OXYCODONE [Concomitant]
     Active Substance: OXYCODONE
  8. IMBRUVICA [Suspect]
     Active Substance: IBRUTINIB
     Indication: MANTLE CELL LYMPHOMA
     Route: 048
     Dates: start: 20150421
  9. FLOMAX [Concomitant]
     Active Substance: TAMSULOSIN HYDROCHLORIDE

REACTIONS (2)
  - Testis cancer [Unknown]
  - Diarrhoea [Unknown]

NARRATIVE: CASE EVENT DATE: 2015
